FAERS Safety Report 7675136-2 (Version None)
Quarter: 2011Q3

REPORT INFORMATION
  Report Type: 
  Country: None (occurrence: None)
  Receive Date: 20110810
  Receipt Date: 20110808
  Transmission Date: 20111222
  Serious: Yes (Hospitalization, Disabling, Other)
  Sender: FDA-Public Use
  Company Number: US-MERCK-1106USA01159

PATIENT
  Age: 76 Year
  Sex: Female
  Weight: 65 kg

DRUGS (11)
  1. ALENDRONATE SODIUM [Suspect]
     Indication: OSTEOPOROSIS
     Route: 048
     Dates: start: 20080101, end: 20090801
  2. HORMONES (UNSPECIFIED) [Concomitant]
     Route: 065
     Dates: start: 20000101, end: 20020101
  3. FOSAMAX [Suspect]
     Indication: OSTEOPOROSIS PROPHYLAXIS
     Route: 048
     Dates: start: 20000101, end: 20090615
  4. FOSAMAX [Suspect]
     Route: 048
     Dates: start: 19990101
  5. GLUCOSAMINE [Concomitant]
     Route: 065
  6. FOSAMAX [Suspect]
     Route: 048
     Dates: start: 19990101
  7. ALENDRONATE SODIUM [Suspect]
     Indication: OSTEOPOROSIS PROPHYLAXIS
     Route: 048
     Dates: start: 20080101, end: 20090801
  8. FOLIC ACID [Concomitant]
     Route: 065
  9. ONE-A-DAY ESSENTIAL VITAMINS [Concomitant]
     Route: 065
  10. CALCIUM (UNSPECIFIED) AND VITAMIN D (UNSPECIFIED) [Concomitant]
     Route: 065
  11. FOSAMAX [Suspect]
     Indication: OSTEOPOROSIS
     Route: 048
     Dates: start: 20000101, end: 20090615

REACTIONS (63)
  - ESCHERICHIA URINARY TRACT INFECTION [None]
  - DEHYDRATION [None]
  - LENS DISLOCATION [None]
  - RETINAL DEGENERATION [None]
  - SYNCOPE [None]
  - RESTLESS LEGS SYNDROME [None]
  - MUSCULAR WEAKNESS [None]
  - GALLBLADDER DISORDER [None]
  - UPPER LIMB FRACTURE [None]
  - ARTHRALGIA [None]
  - ANXIETY [None]
  - SPINAL COLUMN STENOSIS [None]
  - GINGIVAL DISORDER [None]
  - GASTROOESOPHAGEAL REFLUX DISEASE [None]
  - FOOT FRACTURE [None]
  - FIBROCYSTIC BREAST DISEASE [None]
  - ASTHMA [None]
  - FEMUR FRACTURE [None]
  - BASAL CELL CARCINOMA [None]
  - PAIN IN EXTREMITY [None]
  - URINARY RETENTION [None]
  - DIVERTICULUM [None]
  - DIARRHOEA [None]
  - PNEUMONIA [None]
  - BALANCE DISORDER [None]
  - TACHYCARDIA [None]
  - SINUS DISORDER [None]
  - GLAUCOMA [None]
  - OSTEOARTHRITIS [None]
  - FALL [None]
  - DEVICE FAILURE [None]
  - OXYGEN SATURATION DECREASED [None]
  - OSTEOPENIA [None]
  - URGE INCONTINENCE [None]
  - MIXED INCONTINENCE [None]
  - HAEMORRHOIDS [None]
  - HIATUS HERNIA [None]
  - FLATULENCE [None]
  - ADVERSE EVENT [None]
  - ACTINIC KERATOSIS [None]
  - ADENOIDAL DISORDER [None]
  - EYE DISORDER [None]
  - TONSILLAR DISORDER [None]
  - SKIN CANDIDA [None]
  - DIVERTICULUM INTESTINAL [None]
  - BURSITIS [None]
  - BLOOD PRESSURE INCREASED [None]
  - CONVULSION [None]
  - HAEMORRHAGIC ANAEMIA [None]
  - DENTAL CARIES [None]
  - ORAL DISORDER [None]
  - URINARY INCONTINENCE [None]
  - LEFT VENTRICULAR DYSFUNCTION [None]
  - CENTRAL OBESITY [None]
  - CHRONIC OBSTRUCTIVE PULMONARY DISEASE [None]
  - NEUROGENIC BLADDER [None]
  - TOOTH DISORDER [None]
  - HYPERTONIC BLADDER [None]
  - CYSTITIS [None]
  - PERIODONTITIS [None]
  - ATROPHIC VULVOVAGINITIS [None]
  - HYPOTENSION [None]
  - GAIT DISTURBANCE [None]
